FAERS Safety Report 6913695-5 (Version None)
Quarter: 2010Q3

REPORT INFORMATION
  Report Type: 
  Country: None (occurrence: None)
  Receive Date: 20100803
  Receipt Date: 20100629
  Transmission Date: 20110219
  Serious: Yes (Other)
  Sender: FDA-Public Use
  Company Number: 1000015446

PATIENT
  Age: 54 Year
  Sex: Female
  Weight: 66.2 kg

DRUGS (7)
  1. ESCITALOPRAM [Suspect]
     Indication: ANXIETY
     Dosage: 5 MG (5 MG, 1 IN 1 D), ORAL; 10 MG (10 MG, 1 IN 1 D), ORAL
     Route: 048
     Dates: start: 20100613, end: 20100615
  2. ESCITALOPRAM [Suspect]
     Indication: ANXIETY
     Dosage: 5 MG (5 MG, 1 IN 1 D), ORAL; 10 MG (10 MG, 1 IN 1 D), ORAL
     Route: 048
     Dates: start: 20100616
  3. SYNTHROID [Concomitant]
  4. INFUFER (INJECTION) [Concomitant]
  5. AMOXICILLIN-CLAVULANIC ACID (CAPSULES) [Concomitant]
  6. MVI (TABLETS) [Concomitant]
  7. ADVIL LIQUI-GELS [Concomitant]

REACTIONS (10)
  - ANXIETY [None]
  - DECREASED APPETITE [None]
  - FATIGUE [None]
  - HYPERHIDROSIS [None]
  - MENORRHAGIA [None]
  - PARAESTHESIA [None]
  - PERIPHERAL COLDNESS [None]
  - SOMNOLENCE [None]
  - UTERINE LEIOMYOMA [None]
  - YAWNING [None]
